FAERS Safety Report 8615796-2 (Version None)
Quarter: 2012Q3

REPORT INFORMATION
  Report Type: 
  Country: None (occurrence: None)
  Receive Date: 20120823
  Receipt Date: 20120809
  Transmission Date: 20120928
  Serious: Yes (Other)
  Sender: FDA-Public Use
  Company Number: CA-BAXTER-2012BAX014098

PATIENT
  Sex: Female

DRUGS (2)
  1. EXTRANEAL [Suspect]
     Route: 033
  2. EXTRANEAL [Suspect]
     Route: 033

REACTIONS (8)
  - PRURITUS GENERALISED [None]
  - FEELING ABNORMAL [None]
  - PRURITUS [None]
  - EYE SWELLING [None]
  - INSOMNIA [None]
  - OEDEMA [None]
  - CRYING [None]
  - RASH [None]
